FAERS Safety Report 19872684 (Version 1)
Quarter: 2021Q3

REPORT INFORMATION
  Report Type: Spontaneous
  Country: ES (occurrence: ES)
  Receive Date: 20210923
  Receipt Date: 20210923
  Transmission Date: 20211014
  Serious: Yes (Life-Threatening, Hospitalization, Other)
  Sender: FDA-Public Use
  Company Number: ES-LUPIN PHARMACEUTICALS INC.-2021-17943

PATIENT
  Age: 7 Decade
  Sex: Male
  Weight: 95 kg

DRUGS (6)
  1. QUETIAPINE. [Suspect]
     Active Substance: QUETIAPINE
     Indication: DELIRIUM
     Dosage: 25 MILLIGRAM, QD
     Route: 048
  2. GENTAMICIN. [Concomitant]
     Active Substance: GENTAMICIN
     Indication: ATRIAL FIBRILLATION
     Dosage: 200 MILLIGRAM, BID
     Route: 065
  3. QUETIAPINE. [Suspect]
     Active Substance: QUETIAPINE
     Dosage: 25 MILLIGRAM, SINGLE
     Route: 048
  4. AMIODARONE [Concomitant]
     Active Substance: AMIODARONE
     Indication: ATRIAL FIBRILLATION
     Dosage: LOADING DOSE OF 900 MILLIGRAM, QD
     Route: 042
  5. AMIODARONE [Concomitant]
     Active Substance: AMIODARONE
     Dosage: MAINTENANCE OF 200 MILLIGRAM, QD
     Route: 048
  6. PIPERACILLIN AND TAZOBACTAM [Concomitant]
     Active Substance: PIPERACILLIN SODIUM\TAZOBACTAM SODIUM
     Indication: ATRIAL FIBRILLATION
     Dosage: 4/0.5 G EVERY 8 HOURS
     Route: 042

REACTIONS (2)
  - Renal impairment [Not Recovered/Not Resolved]
  - Drug reaction with eosinophilia and systemic symptoms [Recovered/Resolved]
